FAERS Safety Report 20023964 (Version 1)
Quarter: 2021Q4

REPORT INFORMATION
  Report Type: Spontaneous
  Country: US (occurrence: US)
  Receive Date: 20211102
  Receipt Date: 20211102
  Transmission Date: 20220304
  Serious: Yes (Hospitalization, Other)
  Sender: FDA-Public Use
  Company Number: US-MLMSERVICE-20211019-3166003-1

PATIENT
  Age: 38 Year
  Sex: Female

DRUGS (2)
  1. LEVETIRACETAM [Suspect]
     Active Substance: LEVETIRACETAM
     Indication: Epilepsy
     Dosage: INGESTED 100-200 PILLS PRIOR TO EMS.
     Route: 048
     Dates: end: 2020
  2. DIVALPROEX SODIUM [Suspect]
     Active Substance: DIVALPROEX SODIUM
     Indication: Epilepsy
     Dosage: DR TABLETS: INGESTED 100-200 PILLS PRIOR TO EMS.
     Route: 048
     Dates: end: 2020

REACTIONS (7)
  - Drug level increased [Recovering/Resolving]
  - Mental status changes [Recovering/Resolving]
  - Somnolence [Unknown]
  - Intentional overdose [Unknown]
  - Hypotension [Unknown]
  - Toxicity to various agents [Unknown]
  - Hyperammonaemia [Unknown]

NARRATIVE: CASE EVENT DATE: 20200101
